FAERS Safety Report 9891298 (Version 1)
Quarter: 2014Q1

REPORT INFORMATION
  Report Type: Spontaneous
  Country: MX (occurrence: None)
  Receive Date: 20140207
  Receipt Date: 20140207
  Transmission Date: 20141002
  Serious: Yes (Death)
  Sender: FDA-Public Use
  Company Number: A1059099A

PATIENT
  Sex: Female

DRUGS (2)
  1. FLUTICASONE+SALMETEROL [Suspect]
     Indication: PRODUCT USED FOR UNKNOWN INDICATION
  2. PAROXETINE HYDROCHLORIDE [Suspect]
     Indication: PRODUCT USED FOR UNKNOWN INDICATION

REACTIONS (1)
  - Death [None]
